FAERS Safety Report 15333343 (Version 1)
Quarter: 2018Q3

REPORT INFORMATION
  Report Type: Spontaneous
  Country: US (occurrence: US)
  Receive Date: 20180824
  Receipt Date: 20180824
  Transmission Date: 20181010
  Serious: No
  Sender: FDA-Public Use
  Company Number: None

PATIENT
  Age: 32 Year
  Sex: Female
  Weight: 55.35 kg

DRUGS (1)
  1. FLUCONAZOLE. [Suspect]
     Active Substance: FLUCONAZOLE
     Indication: VULVOVAGINAL MYCOTIC INFECTION
     Dosage: ?          QUANTITY:1 TABLET(S);OTHER FREQUENCY:ONE TIME;?
     Route: 048
     Dates: start: 20180824, end: 20180824

REACTIONS (5)
  - Rash pruritic [None]
  - Rash [None]
  - Mouth swelling [None]
  - Lip swelling [None]
  - Skin burning sensation [None]

NARRATIVE: CASE EVENT DATE: 20180824
